FAERS Safety Report 8304753-1 (Version None)
Quarter: 2012Q2

REPORT INFORMATION
  Report Type: 
  Country: None (occurrence: None)
  Receive Date: 20120423
  Receipt Date: 20120416
  Transmission Date: 20120825
  Serious: Yes (Life-Threatening, Other)
  Sender: FDA-Public Use
  Company Number: IT-CELGENEUS-083-21880-11112043

PATIENT
  Sex: Female
  Weight: 61 kg

DRUGS (13)
  1. ASPIRIN [Concomitant]
     Indication: THROMBOSIS PROPHYLAXIS
     Dosage: 100 MILLIGRAM
     Route: 048
     Dates: start: 20091013
  2. AMITRIPTILINA [Concomitant]
     Indication: ANXIOLYTIC THERAPY
     Dosage: 7 GRAM
     Route: 048
  3. DEXAMETHASONE [Concomitant]
     Indication: MULTIPLE MYELOMA
     Route: 048
     Dates: start: 20091016
  4. PAMIDRONATE DISODIUM [Concomitant]
     Dosage: 3 MILLIGRAM
     Route: 065
     Dates: start: 20070101
  5. FERROFOLIC [Concomitant]
     Dosage: 1 GRAM
     Route: 065
  6. REVLIMID [Suspect]
     Dosage: 10 MILLIGRAM
     Route: 048
     Dates: start: 20091127, end: 20110609
  7. REVLIMID [Suspect]
     Dosage: 10 MILLIGRAM
     Route: 048
     Dates: start: 20110909, end: 20110929
  8. REVLIMID [Suspect]
     Dosage: 15 MILLIGRAM
     Route: 048
     Dates: start: 20110617, end: 20110901
  9. DEXAMETHASONE [Concomitant]
     Route: 048
     Dates: start: 20111001
  10. ARANESP [Concomitant]
     Dosage: 214.2857 MICROGRAM
     Route: 065
  11. REVLIMID [Suspect]
     Indication: MULTIPLE MYELOMA
     Dosage: 25 MILLIGRAM
     Route: 048
     Dates: start: 20091013, end: 20091026
  12. ATENOLOL [Concomitant]
     Indication: HYPERTENSION
     Dosage: 25 MILLIGRAM
     Route: 048
  13. OMEPRAZOLE [Concomitant]
     Dosage: 20 MILLIGRAM
     Route: 048

REACTIONS (1)
  - MYELODYSPLASTIC SYNDROME [None]
